FAERS Safety Report 6335734-5 (Version None)
Quarter: 2009Q3

REPORT INFORMATION
  Report Type: 
  Country: None (occurrence: None)
  Receive Date: 20090831
  Receipt Date: 20090821
  Transmission Date: 20100115
  Serious: Yes (Hospitalization)
  Sender: FDA-Public Use
  Company Number: CA-ELI_LILLY_AND_COMPANY-CA200908005079

PATIENT
  Age: 71 Year
  Sex: Female

DRUGS (8)
  1. FORTEO [Suspect]
     Indication: OSTEOPOROSIS
     Dosage: 20 UG, DAILY (1/D)
     Dates: start: 20080410
  2. PREDNISONE [Concomitant]
  3. PLAQUENIL [Concomitant]
  4. VASOTEC [Concomitant]
  5. HYDROCHLOROTHIAZIDE [Concomitant]
  6. CALCIUM WITH VITAMIN D             /00944201/ [Concomitant]
  7. VITAMIN B COMPLEX CAP [Concomitant]
  8. CHLORHEXIDINE DIGLUCONATE ^ENGELHARD^ [Concomitant]

REACTIONS (1)
  - CATARACT [None]
